FAERS Safety Report 11018626 (Version 2)
Quarter: 2015Q2

REPORT INFORMATION
  Report Type: Spontaneous
  Country: US (occurrence: US)
  Receive Date: 20150412
  Receipt Date: 20150524
  Transmission Date: 20150821
  Serious: Yes (Other)
  Sender: FDA-Public Use
  Company Number: US-JNJFOC-20140203642

PATIENT

DRUGS (2)
  1. DOXORUBICIN [Suspect]
     Active Substance: DOXORUBICIN
     Indication: THYROID CANCER
     Route: 042
  2. RADIATION THERAPY NOS [Suspect]
     Active Substance: RADIATION THERAPY
     Indication: THYROID CANCER
     Route: 065

REACTIONS (7)
  - Dermatitis [Unknown]
  - Product use issue [Unknown]
  - Fatigue [Unknown]
  - Toxicity to various agents [Unknown]
  - Mucosal inflammation [Unknown]
  - Thyroid cancer [Unknown]
  - Dysphagia [Unknown]
